FAERS Safety Report 6720931-7 (Version None)
Quarter: 2010Q2

REPORT INFORMATION
  Report Type: 
  Country: None (occurrence: None)
  Receive Date: 20100512
  Receipt Date: 20100505
  Transmission Date: 20101027
  Serious: Yes (Other)
  Sender: FDA-Public Use
  Company Number: US-JNJFOC-20100404659

PATIENT
  Sex: Male
  Weight: 72.58 kg

DRUGS (2)
  1. LEVAQUIN [Suspect]
     Indication: SINUSITIS
     Route: 048
  2. VITAMIN TAB [Concomitant]
     Route: 048

REACTIONS (11)
  - BURNING SENSATION [None]
  - DECREASED APPETITE [None]
  - DEHYDRATION [None]
  - DEPRESSION [None]
  - FATIGUE [None]
  - NEUROPATHY PERIPHERAL [None]
  - SKIN DISCOLOURATION [None]
  - SKIN DISORDER [None]
  - SKIN TURGOR DECREASED [None]
  - TENDON RUPTURE [None]
  - WEIGHT DECREASED [None]
